FAERS Safety Report 7646043-6 (Version None)
Quarter: 2011Q3

REPORT INFORMATION
  Report Type: 
  Country: None (occurrence: None)
  Receive Date: 20110801
  Receipt Date: 20110721
  Transmission Date: 20111222
  Serious: Yes (Hospitalization)
  Sender: FDA-Public Use
  Company Number: DE-BIOGENIDEC-2010BI028650

PATIENT
  Age: 29 Year
  Sex: Female
  Weight: 180 kg

DRUGS (5)
  1. TYSABRI [Suspect]
     Indication: MULTIPLE SCLEROSIS
     Route: 042
     Dates: start: 20061221
  2. VOTUM [Concomitant]
     Route: 048
  3. ENOXAPARIN SODIUM [Concomitant]
     Route: 058
  4. OMEPRAZOLE [Concomitant]
     Route: 048
  5. PIPERACILLIN AND TAZOBACTAM [Concomitant]
     Route: 042
     Dates: end: 20100515

REACTIONS (1)
  - OBESITY [None]
